FAERS Safety Report 4832255-3 (Version None)
Quarter: 2005Q4

REPORT INFORMATION
  Report Type: 
  Country: None (occurrence: None)
  Receive Date: 20051118
  Receipt Date: 20051004
  Transmission Date: 20060501
  Serious: Yes (Hospitalization, Disabling)
  Sender: FDA-Public Use
  Company Number: US-MERCK-0510USA06418

PATIENT
  Age: 50 Year
  Sex: Male
  Weight: 77 kg

DRUGS (3)
  1. VIOXX [Suspect]
     Indication: ARTHRALGIA
     Route: 048
     Dates: start: 20000601, end: 20020601
  2. EFFEXOR [Concomitant]
     Route: 065
  3. PAXIL [Concomitant]
     Route: 065

REACTIONS (7)
  - ANXIETY [None]
  - DEPRESSION [None]
  - HYPERTENSION [None]
  - MENTAL DISORDER [None]
  - MYOCARDIAL INFARCTION [None]
  - PHYSICAL DISABILITY [None]
  - STRESS [None]
